FAERS Safety Report 5706635-8 (Version None)
Quarter: 2008Q2

REPORT INFORMATION
  Report Type: 
  Country: None (occurrence: None)
  Receive Date: 20080414
  Receipt Date: 20061017
  Transmission Date: 20081010
  Serious: Yes (Other)
  Sender: FDA-Public Use
  Company Number: 2006VX001984

PATIENT
  Age: 71 Year
  Sex: Male

DRUGS (4)
  1. LEVATE (AMITRIPTYLINE HYDROCHLORIDE) [Suspect]
     Dosage: 25 MG; TID; PO
     Route: 048
  2. FROSST 292 (PHENACETIN   FREE) [Concomitant]
  3. DALMANE [Concomitant]
  4. DIABETA [Concomitant]

REACTIONS (2)
  - CONFUSIONAL STATE [None]
  - STUPOR [None]
